FAERS Safety Report 12631019 (Version 2)
Quarter: 2016Q3

REPORT INFORMATION
  Report Type: Spontaneous
  Country: US (occurrence: US)
  Receive Date: 20160808
  Receipt Date: 20160808
  Transmission Date: 20161109
  Serious: No
  Sender: FDA-Public Use
  Company Number: US-BEH-2015051869

PATIENT
  Age: 9 Year
  Sex: Female

DRUGS (1)
  1. HIZENTRA [Suspect]
     Active Substance: HUMAN IMMUNOGLOBULIN G
     Indication: PRODUCT USED FOR UNKNOWN INDICATION

REACTIONS (7)
  - Application site nodule [Recovered/Resolved]
  - Nodule [Recovered/Resolved]
  - Infusion site pain [Recovered/Resolved]
  - Ear infection [Unknown]
  - Urticaria [Recovered/Resolved]
  - Application site erythema [Recovered/Resolved]
  - Swelling [Recovered/Resolved]
